FAERS Safety Report 4679382-1 (Version None)
Quarter: 2005Q2

REPORT INFORMATION
  Report Type: 
  Country: None (occurrence: None)
  Receive Date: 20050602
  Receipt Date: 20050526
  Transmission Date: 20051028
  Serious: Yes (Hospitalization)
  Sender: FDA-Public Use
  Company Number: 2005-UK-00393UK

PATIENT
  Age: 61 Year
  Sex: Male

DRUGS (5)
  1. SALBUTAMOL [Suspect]
     Dosage: 100MCG UNKNOWN
     Route: 065
  2. SALMETEROL [Suspect]
     Dosage: 25MCG UNKNOWN
     Route: 065
  3. BECLOMETHASONE DIPROPIONATE [Suspect]
     Dosage: 250MCG UNKNOWN
     Route: 065
  4. SIMVASTATIN [Suspect]
     Dosage: 40MG UNKNOWN
     Route: 065
  5. MICARDIS [Suspect]
     Dosage: 80MG UNKNOWN
     Route: 065
     Dates: start: 20010815

REACTIONS (1)
  - ACUTE MYOCARDIAL INFARCTION [None]
